FAERS Safety Report 7910914-3 (Version None)
Quarter: 2011Q4

REPORT INFORMATION
  Report Type: 
  Country: None (occurrence: None)
  Receive Date: 20111114
  Receipt Date: 20111102
  Transmission Date: 20120403
  Serious: No
  Sender: FDA-Public Use
  Company Number: US-BIOGENIDEC-2011BI042202

PATIENT
  Age: 54 Year
  Sex: Female

DRUGS (10)
  1. FOSAMAX [Concomitant]
     Indication: OSTEOPENIA
  2. HYDROCHLOROTHIAZIDE [Concomitant]
  3. BETASERON [Concomitant]
     Indication: MULTIPLE SCLEROSIS
  4. FULVIC (NOS) [Concomitant]
     Indication: EPSTEIN-BARR VIRUS INFECTION
  5. LORAZEPAM [Concomitant]
     Indication: PREMEDICATION
  6. TYSABRI [Suspect]
     Indication: MULTIPLE SCLEROSIS
     Route: 042
     Dates: start: 20110214
  7. BENADRYL [Concomitant]
     Indication: PREMEDICATION
  8. COPAXONE [Concomitant]
     Indication: MULTIPLE SCLEROSIS
  9. PHENERGAN [Concomitant]
     Indication: PREMEDICATION
  10. REBIF [Concomitant]
     Indication: MULTIPLE SCLEROSIS

REACTIONS (8)
  - COORDINATION ABNORMAL [None]
  - HEADACHE [None]
  - VEIN DISORDER [None]
  - BLOOD POTASSIUM DECREASED [None]
  - FALL [None]
  - PAIN IN EXTREMITY [None]
  - DYSPNOEA [None]
  - FATIGUE [None]
